FAERS Safety Report 8102174 (Version 3)
Quarter: 2015Q2

REPORT INFORMATION
  Report Type: Spontaneous
  Country: JP (occurrence: None)
  Receive Date: 20110805
  Receipt Date: 20150629
  Transmission Date: 20150821
  Serious: Yes (Other)
  Sender: FDA-Public Use
  Company Number: 2008JP005121

PATIENT
  Age: 34 Year
  Sex: Male
  Weight: 69 kg

DRUGS (21)
  1. BAKTAR [Concomitant]
     Active Substance: SULFAMETHOXAZOLE\TRIMETHOPRIM
  2. MEDICON [Concomitant]
     Active Substance: DEXTROMETHORPHAN HYDROBROMIDE
  3. TACROLIMUS. [Suspect]
     Active Substance: TACROLIMUS
     Indication: LUPUS NEPHRITIS
     Dosage: 3 MG, ONCE DAILY, ORAL
     Route: 048
     Dates: start: 20070423, end: 20080312
  4. SAIREI-TO [Concomitant]
     Active Substance: UNSPECIFIED INGREDIENT
  5. SHOUSEIRYUUTOU [Concomitant]
  6. ALLELOCK [Concomitant]
     Active Substance: OLOPATADINE HYDROCHLORIDE
  7. ASTOMIN [Concomitant]
     Active Substance: DIMEMORFAN
  8. WARFARIN [Concomitant]
     Active Substance: WARFARIN
  9. MUCOSOLVAN [Concomitant]
     Active Substance: AMBROXOL\CLENBUTEROL
  10. LOCHOL [Concomitant]
     Active Substance: FLUVASTATIN SODIUM
  11. PREDNISOLONE. [Suspect]
     Active Substance: PREDNISOLONE
     Indication: LUPUS NEPHRITIS
     Dosage: 30 MG, ONCE DAILY, ORAL
     Route: 048
     Dates: end: 20070528
  12. PL GRAN [Concomitant]
  13. BAYASPIRIN (ACETYLSALICYLIC ACID) (ACETYLSALICYLIC ACID) [Concomitant]
     Active Substance: ASPIRIN
  14. BENET [Concomitant]
     Active Substance: RISEDRONATE SODIUM
  15. KEISHIBUKURYOUGAN [Concomitant]
  16. HOCHUUEKKITOU [Concomitant]
     Active Substance: HERBALS
  17. TRICHLORMETHIAZIDE [Concomitant]
     Active Substance: TRICHLORMETHIAZIDE
  18. MICARDIS [Concomitant]
     Active Substance: TELMISARTAN
  19. TAKEPRON [Concomitant]
     Active Substance: LANSOPRAZOLE
  20. MUCOSTA [Concomitant]
     Active Substance: REBAMIPIDE
  21. BONALON [Concomitant]
     Active Substance: ALENDRONATE SODIUM

REACTIONS (10)
  - Cataract [None]
  - Tremor [None]
  - Headache [None]
  - Dermal cyst [None]
  - Pharyngitis [None]
  - Urticaria [None]
  - Upper respiratory tract inflammation [None]
  - Rhinitis allergic [None]
  - Nasopharyngitis [None]
  - Nervousness [None]

NARRATIVE: CASE EVENT DATE: 200802
